FAERS Safety Report 7768773-8 (Version None)
Quarter: 2011Q3

REPORT INFORMATION
  Report Type: 
  Country: None (occurrence: None)
  Receive Date: 20110922
  Receipt Date: 20110429
  Transmission Date: 20111222
  Serious: No
  Sender: FDA-Public Use
  Company Number: US-ASTRAZENECA-2007UW03350

PATIENT
  Age: 24 Year
  Sex: Female
  Weight: 70.3 kg

DRUGS (11)
  1. SEROQUEL [Suspect]
     Route: 048
     Dates: start: 20110101
  2. CENTRUM [Concomitant]
     Dosage: 1 TABLET WITH FOOD
  3. LOESTRIN 1.5/30 [Concomitant]
     Indication: CONTRACEPTION
  4. SEROQUEL [Suspect]
     Route: 048
  5. FERROUS SULFATE TAB [Concomitant]
  6. SEROQUEL [Suspect]
     Indication: BIPOLAR DISORDER
     Route: 048
     Dates: start: 20050101, end: 20110101
  7. LAMICTAL [Concomitant]
     Indication: BIPOLAR DISORDER
  8. LAMICTAL [Concomitant]
  9. WELLBUTRIN XL [Concomitant]
     Indication: BIPOLAR DISORDER
  10. VITAMIN E [Concomitant]
  11. CLARITIN [Concomitant]
     Indication: SEASONAL ALLERGY

REACTIONS (4)
  - NASAL CONGESTION [None]
  - CRYING [None]
  - FEELING ABNORMAL [None]
  - SCREAMING [None]
